FAERS Safety Report 10527960 (Version 1)
Quarter: 2014Q4

REPORT INFORMATION
  Report Type: Other
  Country: DE (occurrence: DE)
  Receive Date: 20141020
  Receipt Date: 20141020
  Transmission Date: 20150528
  Serious: Yes (Congenital Anomaly)
  Sender: FDA-Public Use
  Company Number: DE-MYLANLABS-2014M1006683

PATIENT

DRUGS (8)
  1. CITALOPRAM [Suspect]
     Active Substance: CITALOPRAM HYDROBROMIDE
     Indication: SELF-MEDICATION
     Dosage: 2.5 [MG/D ] (0. - 38.3. GESTATIONAL WEEK)
     Route: 064
  2. CEFUROXIM [Concomitant]
     Active Substance: CEFUROXIME
     Indication: PYELONEPHRITIS
     Dosage: FOR 5 DAYS AFTER AMOXI MEDICATION, DOES UNKNOWN (23. - 23.4. GESTATIONAL WEEK)
     Route: 064
  3. FEMIBION [Concomitant]
     Active Substance: VITAMINS
     Indication: PROPHYLAXIS OF NEURAL TUBE DEFECT
     Dosage: 5. - 12. GESTATIONAL WEEK
     Route: 064
  4. TRAMADOLOR [Concomitant]
     Active Substance: TRAMADOL
     Indication: SUBSTANCE ABUSER
     Dosage: 200 [MG/D ] (UNTIL ONE WEEK BEFORE DELIVERY, 2X100MG/D)
     Route: 064
  5. VOMACUR [Concomitant]
     Indication: VOMITING IN PREGNANCY
     Dosage: 50 [MG/D ] (TRIMESTER: LONG TERM EXPOSURE)
     Route: 064
  6. VITAMIN B6 } PYRIDOXIN [Concomitant]
     Indication: VOMITING IN PREGNANCY
     Dosage: FROM 4TH GESTATIONAL MONTH, FOR ABOUT 3 WEEKS
     Route: 064
  7. PARACETAMOL [Concomitant]
     Active Substance: ACETAMINOPHEN
     Indication: HEADACHE
     Dosage: TAKEN 3 TO 4 TIMES DURING PREGNANCY
     Route: 064
  8. AMOXICILLIN. [Concomitant]
     Active Substance: AMOXICILLIN
     Indication: PYELONEPHRITIS
     Dosage: 1000 MG, BID (2000 MG/D) (22.1. - 22.6. GESTATIONAL WEEK)
     Route: 064

REACTIONS (2)
  - Syndactyly [Unknown]
  - Foetal exposure during pregnancy [Unknown]

NARRATIVE: CASE EVENT DATE: 20130806
